FAERS Safety Report 13935399 (Version 1)
Quarter: 2017Q3

REPORT INFORMATION
  Report Type: Spontaneous
  Country: US (occurrence: US)
  Receive Date: 20170905
  Receipt Date: 20170905
  Transmission Date: 20171127
  Serious: No
  Sender: FDA-Public Use
  Company Number: US-BIOGEN-2017BI00450814

PATIENT
  Age: 35 Year
  Sex: Female

DRUGS (1)
  1. TYSABRI [Suspect]
     Active Substance: NATALIZUMAB
     Indication: MULTIPLE SCLEROSIS
     Route: 042
     Dates: start: 20170619

REACTIONS (6)
  - Fatigue [Recovered/Resolved with Sequelae]
  - Rash [Recovered/Resolved]
  - Hypersensitivity [Recovered/Resolved with Sequelae]
  - Feeling hot [Not Recovered/Not Resolved]
  - Asthenia [Recovered/Resolved with Sequelae]
  - Peripheral swelling [Not Recovered/Not Resolved]

NARRATIVE: CASE EVENT DATE: 20170619
